FAERS Safety Report 21743616 (Version 3)
Quarter: 2025Q2

REPORT INFORMATION
  Report Type: Report from Study
  Country: US (occurrence: US)
  Receive Date: 20221217
  Receipt Date: 20250507
  Transmission Date: 20250717
  Serious: Yes (Death)
  Sender: ABBVIE
  Company Number: US-ABBVIE-4240623

PATIENT
  Age: 65 Year
  Sex: Female
  Weight: 91.625 kg

DRUGS (2)
  1. HUMIRA [Suspect]
     Active Substance: ADALIMUMAB
     Indication: Rheumatoid arthritis
     Dosage: FORM STRENGTH: 40 MG CITRATE FREE
     Route: 058
     Dates: start: 202202, end: 202302
  2. HUMIRA [Suspect]
     Active Substance: ADALIMUMAB
     Dosage: FORM STRENGTH: 40 MG, CITRATE FREE
     Route: 058

REACTIONS (3)
  - Lung neoplasm malignant [Fatal]
  - Rheumatoid arthritis [Not Recovered/Not Resolved]
  - Salivary gland neoplasm [Fatal]

NARRATIVE: CASE EVENT DATE: 20220401
